FAERS Safety Report 7688763-3 (Version None)
Quarter: 2011Q3

REPORT INFORMATION
  Report Type: 
  Country: None (occurrence: None)
  Receive Date: 20110817
  Receipt Date: 20110808
  Transmission Date: 20111222
  Serious: Yes (Other)
  Sender: FDA-Public Use
  Company Number: US-CEPHALON-US023693

PATIENT
  Age: 60 Year
  Sex: Female
  Weight: 77 kg

DRUGS (7)
  1. ABILIFY [Concomitant]
     Indication: BIPOLAR DISORDER
     Route: 048
  2. SINEMET [Concomitant]
     Indication: RESTLESS LEGS SYNDROME
     Route: 048
  3. DETROL LA [Concomitant]
     Route: 048
  4. SEROQUEL [Concomitant]
     Indication: BIPOLAR DISORDER
     Route: 048
  5. CYMBALTA [Concomitant]
     Indication: BIPOLAR DISORDER
     Dosage: 60 OR 80 MG PER DAY
     Route: 048
  6. PRILOSEC [Concomitant]
     Route: 048
  7. PROVIGIL [Suspect]
     Indication: FATIGUE
     Route: 048
     Dates: start: 20080101, end: 20080528

REACTIONS (2)
  - RASH ERYTHEMATOUS [None]
  - HYPERSENSITIVITY [None]
